FAERS Safety Report 8235729 (Version 2)
Quarter: 2013Q4

REPORT INFORMATION
  Report Type: Spontaneous
  Country: US (occurrence: US)
  Receive Date: 20111108
  Receipt Date: 20131113
  Transmission Date: 20140711
  Serious: Yes (Hospitalization, Other)
  Sender: FDA-Public Use
  Company Number: US-AMGEN-USASP2011056764

PATIENT
  Age: 24 Year
  Sex: Female
  Weight: 129.25 kg

DRUGS (2)
  1. PROCRIT [Suspect]
     Indication: SYNCOPE
     Dosage: 10000 UNIT/ML 25 PACK RAR
     Route: 058
     Dates: start: 20110210, end: 20110922
  2. PROCRIT [Suspect]
     Dosage: 15000 IU, 3 TIMES/WK
     Route: 058
     Dates: start: 20110922, end: 2011

REACTIONS (7)
  - Abdominal pain [Recovered/Resolved]
  - Hernia [Recovered/Resolved]
  - Cholecystectomy [Recovered/Resolved]
  - Device malfunction [Recovered/Resolved]
  - Post procedural complication [Recovered/Resolved]
  - Haematocrit decreased [Recovered/Resolved]
  - Expired drug administered [Not Recovered/Not Resolved]
